FAERS Safety Report 6854111-1 (Version None)
Quarter: 2010Q3

REPORT INFORMATION
  Report Type: 
  Country: None (occurrence: None)
  Receive Date: 20100717
  Receipt Date: 20071228
  Transmission Date: 20110219
  Serious: Yes (Other)
  Sender: FDA-Public Use
  Company Number: US-PFIZER INC-2008000678

PATIENT
  Sex: Female
  Weight: 59.9 kg

DRUGS (5)
  1. CHANTIX [Suspect]
     Indication: SMOKING CESSATION THERAPY
     Dates: start: 20071201
  2. VERAPAMIL [Concomitant]
     Indication: BLOOD PRESSURE
  3. LABETALOL HCL [Concomitant]
     Indication: BLOOD PRESSURE
  4. CARDURA [Concomitant]
     Indication: BLOOD PRESSURE
  5. DOXAZOSIN [Concomitant]
     Indication: BLOOD PRESSURE

REACTIONS (2)
  - NAUSEA [None]
  - SOMNOLENCE [None]
